FAERS Safety Report 11761629 (Version 5)
Quarter: 2017Q4

REPORT INFORMATION
  Report Type: Spontaneous
  Country: US (occurrence: US)
  Receive Date: 20151120
  Receipt Date: 20171031
  Transmission Date: 20180320
  Serious: Yes (Hospitalization, Other)
  Sender: FDA-Public Use
  Company Number: US-ELI_LILLY_AND_COMPANY-US201511005658

PATIENT
  Age: 53 Year
  Sex: Male
  Weight: 81.63 kg

DRUGS (4)
  1. AXIRON [Suspect]
     Active Substance: TESTOSTERONE
     Indication: ERECTILE DYSFUNCTION
     Dosage: UNK
     Dates: start: 2010
  2. AXIRON [Suspect]
     Active Substance: TESTOSTERONE
     Dosage: UNK
     Route: 065
     Dates: start: 20150206, end: 20150722
  3. AXIRON [Suspect]
     Active Substance: TESTOSTERONE
     Dosage: UNK, UNKNOWN
     Route: 065
     Dates: start: 20130207, end: 20140605
  4. PHENTOLAMINE [Concomitant]
     Active Substance: PHENTOLAMINE
     Indication: BLOOD PRESSURE MEASUREMENT
     Dosage: UNK
     Dates: start: 2012

REACTIONS (5)
  - Appendicitis [Unknown]
  - Thrombosis [Unknown]
  - Short-bowel syndrome [Not Recovered/Not Resolved]
  - Intestinal ischaemia [Unknown]
  - Intestinal obstruction [Unknown]

NARRATIVE: CASE EVENT DATE: 201406
